FAERS Safety Report 17660667 (Version 1)
Quarter: 2020Q2

REPORT INFORMATION
  Report Type: Spontaneous
  Country: US (occurrence: US)
  Receive Date: 20200413
  Receipt Date: 20200413
  Transmission Date: 20200713
  Serious: Yes (Death, Hospitalization)
  Sender: FDA-Public Use
  Company Number: US-CELGENEUS-USA-20200402880

PATIENT
  Age: 72 Year
  Sex: Male

DRUGS (2)
  1. ABRAXANE [Suspect]
     Active Substance: PACLITAXEL
     Indication: ADENOCARCINOMA
     Dosage: 240 MILLIGRAM
     Route: 041
     Dates: start: 20200203
  2. ABRAXANE [Suspect]
     Active Substance: PACLITAXEL
     Dosage: 240 MILLIGRAM
     Route: 041
     Dates: start: 20200309

REACTIONS (9)
  - Pneumothorax spontaneous [Unknown]
  - Rib fracture [Unknown]
  - Pneumonia [Fatal]
  - Septic shock [Fatal]
  - Pancreatic carcinoma [Fatal]
  - Deep vein thrombosis [Unknown]
  - Respiratory failure [Fatal]
  - Atrial fibrillation [Unknown]
  - Fall [Unknown]

NARRATIVE: CASE EVENT DATE: 202003
